FAERS Safety Report 10180698 (Version 2)
Quarter: 2014Q4

REPORT INFORMATION
  Report Type: Spontaneous
  Country: US (occurrence: US)
  Receive Date: 20140519
  Receipt Date: 20141006
  Transmission Date: 20150528
  Serious: No
  Sender: FDA-Public Use
  Company Number: US-AMGEN INC.-USASP2014017102

PATIENT
  Age: 66 Year
  Sex: Female

DRUGS (2)
  1. CALCIUM [Concomitant]
     Active Substance: CALCIUM
     Route: 065
  2. PROLIA [Suspect]
     Active Substance: DENOSUMAB
     Indication: OSTEOPENIA
     Dosage: UNK
     Route: 065
     Dates: start: 201312

REACTIONS (5)
  - Rash [Recovered/Resolved]
  - Back pain [Recovering/Resolving]
  - Gait disturbance [Unknown]
  - Musculoskeletal pain [Recovering/Resolving]
  - Fasciitis [Unknown]

NARRATIVE: CASE EVENT DATE: 201401
